FAERS Safety Report 7564363-0 (Version None)
Quarter: 2011Q2

REPORT INFORMATION
  Report Type: 
  Country: None (occurrence: None)
  Receive Date: 20110622
  Receipt Date: 20110610
  Transmission Date: 20111010
  Serious: Yes (Hospitalization)
  Sender: FDA-Public Use
  Company Number: PHHY2011GR50461

PATIENT
  Age: 57 Year
  Sex: Male

DRUGS (1)
  1. EXTAVIA [Suspect]

REACTIONS (5)
  - WALKING DISABILITY [None]
  - HEMIPLEGIA [None]
  - SPEECH DISORDER [None]
  - MULTIPLE SCLEROSIS RELAPSE [None]
  - FACIAL PARESIS [None]
